FAERS Safety Report 11004157 (Version 1)
Quarter: 2015Q2

REPORT INFORMATION
  Report Type: Spontaneous
  Country: JP (occurrence: None)
  Receive Date: 20150407
  Receipt Date: 20150407
  Transmission Date: 20150821
  Serious: Yes (Hospitalization)
  Sender: FDA-Public Use
  Company Number: FK201501579

PATIENT
  Age: 54 Year
  Sex: Male

DRUGS (12)
  1. PREDNISOLONE (PREDNISOLONE) (PREDNISOLONE) [Suspect]
     Active Substance: PREDNISOLONE
     Indication: B-CELL LYMPHOMA
     Dosage: CYCLICAL
  2. BENDAMUSTINE (BENDAMUSTINE) (BENDAMUSTINE) [Suspect]
     Active Substance: BENDAMUSTINE
     Dosage: CYCLICAL
  3. ADRIAMYCIN [Suspect]
     Active Substance: DOXORUBICIN HYDROCHLORIDE
     Indication: B-CELL LYMPHOMA
     Dosage: CYCLICAL
  4. RITUXIMAB (RITUXIMAB) (RITUXIMAB) [Suspect]
     Active Substance: RITUXIMAB
     Indication: B-CELL LYMPHOMA
     Dosage: CYCLICAL
  5. ETOPOSIDE (ETOPOSIDE) (ETOPOSIDE) [Suspect]
     Active Substance: ETOPOSIDE
     Indication: B-CELL LYMPHOMA
  6. VINCRISTINE (VINCRISTINE) (VINCRISTINE) [Suspect]
     Active Substance: VINCRISTINE
     Indication: B-CELL LYMPHOMA
     Dosage: CYCLICAL
  7. CYTARABINE (MANUFACTURER UNKNOWN) (CYTARABINE) (CYTARABINE) [Suspect]
     Active Substance: CYTARABINE
     Indication: B-CELL LYMPHOMA
     Dosage: CYCLICAL
  8. DEXAMETHASONE INJECTION (MANUFACTURER UNKNOWN) (DEXAMETHASONE SODIUM PHOSPHATE) (DEXAMETHASONE SODIUM PHOSPHATE) [Suspect]
     Active Substance: DEXAMETHASONE SODIUM PHOSPHATE
     Indication: B-CELL LYMPHOMA
     Dosage: CYCLICAL
  9. CYCLOPHOSPHAMIDE (MANUFACTURER UNKNOWN)(CYCLOPHOSPHAMIDE)(CYCLOPHOSPHAMIDE) [Suspect]
     Active Substance: CYCLOPHOSPHAMIDE
     Indication: B-CELL LYMPHOMA
     Dosage: CYCLICAL
  10. EVEROLIMUS (EVEROLIMUS) [Suspect]
     Active Substance: EVEROLIMUS
     Indication: B-CELL LYMPHOMA
  11. 90 Y IBRITUMOMAB TIUXETAN (YTTRIUM 90 IBRITUMOMAB TIUXETAN) (YTTRIUM 90 IBRITUMOMAB TIUXETAN) [Suspect]
     Active Substance: YTTRIUM Y-90 IBRITUMOMAB TIUXETAN
     Indication: B-CELL LYMPHOMA
  12. MELPHALAN (MELPHALAN) (MELPHALAN) [Suspect]
     Active Substance: MELPHALAN
     Indication: B-CELL LYMPHOMA

REACTIONS (1)
  - Myelodysplastic syndrome [None]
